FAERS Safety Report 7405311-3 (Version None)
Quarter: 2011Q2

REPORT INFORMATION
  Report Type: 
  Country: None (occurrence: None)
  Receive Date: 20110411
  Receipt Date: 20110330
  Transmission Date: 20111010
  Serious: No
  Sender: FDA-Public Use
  Company Number: PHHY2010US20819

PATIENT
  Sex: Female
  Weight: 123 kg

DRUGS (9)
  1. EXJADE [Suspect]
     Dosage: 500 MG, QD
     Route: 048
  2. EXJADE [Suspect]
     Indication: NEOPLASM
     Dosage: 500 MG, TID
     Route: 048
     Dates: start: 20071101
  3. EXJADE [Suspect]
     Dosage: 500 MG DAILY
     Dates: start: 20090901, end: 20100701
  4. REVLIMID [Concomitant]
     Dosage: UNK
  5. CELEBREX [Concomitant]
     Dosage: 100 MG, DAILY
  6. PERCODAN-DEMI [Concomitant]
     Dosage: 1-7, DAILY
  7. XANAX [Concomitant]
     Dosage: 0.5 MG BID/ TID
  8. EXJADE [Suspect]
     Dosage: 20 MG/KG, QD
     Route: 048
  9. PRILOSEC [Concomitant]
     Dosage: 20 DAILY

REACTIONS (13)
  - RENAL DISORDER [None]
  - GLOMERULAR FILTRATION RATE DECREASED [None]
  - HAEMOGLOBIN DECREASED [None]
  - MONOCYTE COUNT INCREASED [None]
  - HAEMATOCRIT DECREASED [None]
  - EOSINOPHIL COUNT INCREASED [None]
  - BLOOD UREA INCREASED [None]
  - DIARRHOEA [None]
  - RED BLOOD CELL COUNT DECREASED [None]
  - WHITE BLOOD CELL COUNT DECREASED [None]
  - CONTUSION [None]
  - MEAN CELL VOLUME INCREASED [None]
  - NEUTROPHIL COUNT INCREASED [None]
